FAERS Safety Report 8792742 (Version 2)
Quarter: 2015Q1

REPORT INFORMATION
  Report Type: Report from Study
  Country: US (occurrence: US)
  Receive Date: 20120918
  Receipt Date: 20150220
  Transmission Date: 20150721
  Serious: Yes (Death)
  Sender: FDA-Public Use
  Company Number: US-ROCHE-1124968

PATIENT
  Sex: Female

DRUGS (11)
  1. NEULASTA [Concomitant]
     Active Substance: PEGFILGRASTIM
     Route: 058
  2. NAVELBINE [Concomitant]
     Active Substance: VINORELBINE TARTRATE
     Route: 042
  3. TAXOL [Concomitant]
     Active Substance: PACLITAXEL
  4. ADRIAMYCIN [Concomitant]
     Active Substance: DOXORUBICIN HYDROCHLORIDE
     Route: 042
  5. LEVAQUIN [Concomitant]
     Active Substance: LEVOFLOXACIN
     Route: 042
  6. AVASTIN [Suspect]
     Active Substance: BEVACIZUMAB
     Indication: BREAST CANCER
     Dosage: 10 MG/KG
     Route: 042
     Dates: start: 20091110
  7. AVASTIN [Suspect]
     Active Substance: BEVACIZUMAB
     Indication: IRON DEFICIENCY ANAEMIA
  8. GEMZAR [Concomitant]
     Active Substance: GEMCITABINE HYDROCHLORIDE
  9. KYTRIL [Concomitant]
     Active Substance: GRANISETRON HYDROCHLORIDE
     Route: 042
  10. CAPECITABINE. [Suspect]
     Active Substance: CAPECITABINE
     Indication: PRODUCT USED FOR UNKNOWN INDICATION
     Route: 065
     Dates: end: 200909
  11. CYTOXAN [Concomitant]
     Active Substance: CYCLOPHOSPHAMIDE
     Route: 042

REACTIONS (21)
  - Skin disorder [Unknown]
  - Pain [Unknown]
  - Metastases to lung [Unknown]
  - Metastases to liver [Unknown]
  - Pyrexia [Recovered/Resolved]
  - Anxiety [Unknown]
  - Dehydration [Unknown]
  - Breast cellulitis [Unknown]
  - Death [Fatal]
  - Dyspnoea [Unknown]
  - Asthenia [Unknown]
  - Dizziness [Unknown]
  - Orthostatic hypertension [Unknown]
  - Syncope [Unknown]
  - Erythema [Unknown]
  - Excessive granulation tissue [Unknown]
  - Fatigue [Unknown]
  - Nausea [Unknown]
  - Disease progression [Unknown]
  - Malaise [Unknown]
  - Chest discomfort [Unknown]
